FAERS Safety Report 5037888-X (Version None)
Quarter: 2006Q2

REPORT INFORMATION
  Report Type: 
  Country: None (occurrence: None)
  Receive Date: 20060601
  Receipt Date: 20060204
  Transmission Date: 20061013
  Serious: No
  Sender: FDA-Public Use
  Company Number: 2006PV008156

PATIENT
  Age: 72 Year
  Sex: Female
  Weight: 90.7194 kg

DRUGS (3)
  1. BYETTA [Suspect]
     Indication: DIABETES MELLITUS NON-INSULIN-DEPENDENT
     Dosage: 10 MCG;BID;SC
     Route: 058
     Dates: start: 20051206
  2. ACTOS /USA/ [Concomitant]
  3. GLUCOPHAGE [Concomitant]

REACTIONS (6)
  - ANOREXIA [None]
  - COUGH [None]
  - NASOPHARYNGITIS [None]
  - NAUSEA [None]
  - VIRAL INFECTION [None]
  - WEIGHT DECREASED [None]
